FAERS Safety Report 9775986 (Version 1)
Quarter: 2013Q4

REPORT INFORMATION
  Report Type: Spontaneous
  Country: US (occurrence: US)
  Receive Date: 20131220
  Receipt Date: 20131220
  Transmission Date: 20140711
  Serious: No
  Sender: FDA-Public Use
  Company Number: -SAAVPROD-THYR-1000884

PATIENT
  Sex: 0

DRUGS (1)
  1. THYROTROPIN ALFA [Suspect]
     Dosage: UNK
     Route: 063

REACTIONS (1)
  - Exposure during breast feeding [Unknown]
